FAERS Safety Report 9979172 (Version 1)
Quarter: 2014Q1

REPORT INFORMATION
  Report Type: Report from Study
  Country: US (occurrence: US)
  Receive Date: 20140306
  Receipt Date: 20140306
  Transmission Date: 20141002
  Serious: No
  Sender: FDA-Public Use
  Company Number: US-ABBVIE-13P-163-1169240-00

PATIENT
  Age: 52 Year
  Sex: Female
  Weight: 72.64 kg

DRUGS (7)
  1. HUMIRA [Suspect]
     Indication: RHEUMATOID ARTHRITIS
     Dates: start: 2012
  2. FOLIC ACID [Concomitant]
     Indication: VITAMIN SUPPLEMENTATION
  3. PROZAC [Concomitant]
     Indication: DEPRESSION
  4. BUSPAR [Concomitant]
     Indication: DEPRESSION
  5. HORMONE REPLACEMENT [Concomitant]
     Indication: HORMONE REPLACEMENT THERAPY
  6. ACYCLOVIR [Concomitant]
     Indication: HERPES VIRUS INFECTION
  7. OMEPRAZOLE [Concomitant]
     Indication: GASTROOESOPHAGEAL REFLUX DISEASE

REACTIONS (1)
  - Arthralgia [Not Recovered/Not Resolved]
